FAERS Safety Report 8451321-7 (Version None)
Quarter: 2012Q2

REPORT INFORMATION
  Report Type: 
  Country: None (occurrence: None)
  Receive Date: 20120620
  Receipt Date: 20120612
  Transmission Date: 20120825
  Serious: Yes (Hospitalization)
  Sender: FDA-Public Use
  Company Number: US-B.I. PHARMACEUTICALS,INC./RIDGEFIELD-2012-BP-13673BP

PATIENT
  Sex: Male
  Weight: 95 kg

DRUGS (2)
  1. PRADAXA [Suspect]
     Indication: ARRHYTHMIA
     Dates: start: 20110809, end: 20110822
  2. HYDROCODONE [Concomitant]
     Indication: NECK PAIN
     Route: 048

REACTIONS (4)
  - HAEMATOCHEZIA [None]
  - LARGE INTESTINAL HAEMORRHAGE [None]
  - BLOOD COUNT ABNORMAL [None]
  - DIARRHOEA [None]
